FAERS Safety Report 7098680-8 (Version None)
Quarter: 2010Q4

REPORT INFORMATION
  Report Type: 
  Country: None (occurrence: None)
  Receive Date: 20101110
  Receipt Date: 20101110
  Transmission Date: 20110411
  Serious: Yes (Other)
  Sender: FDA-Public Use
  Company Number: None

PATIENT
  Age: 55 Year
  Sex: Female
  Weight: 72.5755 kg

DRUGS (1)
  1. LEVAQUIN [Suspect]
     Indication: PNEUMONIA
     Dosage: 1 TABLET 1 DAILY PO
     Route: 048
     Dates: start: 20101018, end: 20101025

REACTIONS (4)
  - INFLAMMATION [None]
  - PAIN [None]
  - SWELLING [None]
  - WEIGHT INCREASED [None]
